FAERS Safety Report 10024054 (Version 2)
Quarter: 2014Q2

REPORT INFORMATION
  Report Type: Report from Study
  Country: GB (occurrence: GB)
  Receive Date: 20140320
  Receipt Date: 20140505
  Transmission Date: 20141212
  Serious: Yes (Hospitalization)
  Sender: FDA-Public Use
  Company Number: GB-ALEXION PHARMACEUTICALS INC.-A201400748

PATIENT
  Sex: 0

DRUGS (2)
  1. SOLIRIS [Suspect]
     Indication: PAROXYSMAL NOCTURNAL HAEMOGLOBINURIA
     Dosage: 1200 MG, Q2W
     Route: 042
     Dates: start: 20120727
  2. SOLIRIS [Suspect]
     Dosage: 1200 MG, 2/52
     Route: 042
     Dates: start: 20130517

REACTIONS (4)
  - Cholecystitis [Unknown]
  - Jaundice [Unknown]
  - Pyrexia [Unknown]
  - Neuralgia [Unknown]
